FAERS Safety Report 17892804 (Version 7)
Quarter: 2022Q3

REPORT INFORMATION
  Report Type: Other
  Country: GT (occurrence: GT)
  Receive Date: 20200613
  Receipt Date: 20220727
  Transmission Date: 20221026
  Serious: Yes (Life-Threatening, Hospitalization)
  Sender: FDA-Public Use
  Company Number: GT-002147023-NVSC2020GT158913

PATIENT
  Age: 42 Year
  Sex: Female
  Weight: 65 kg

DRUGS (15)
  1. XOLAIR [Suspect]
     Active Substance: OMALIZUMAB
     Indication: Chronic spontaneous urticaria
     Dosage: CONCENTRATE FOR CONCENTRATE FOR SOLUTION FOR INFUSION
     Route: 058
     Dates: start: 201811
  2. XOLAIR [Suspect]
     Active Substance: OMALIZUMAB
     Dosage: 300 MG, EVERY 7 TO 8 WEEKS
     Route: 058
  3. XOLAIR [Suspect]
     Active Substance: OMALIZUMAB
     Dosage: 7TO 8 WEEKS
     Route: 058
  4. XOLAIR [Suspect]
     Active Substance: OMALIZUMAB
     Route: 058
     Dates: start: 20210708
  5. XOLAIR [Suspect]
     Active Substance: OMALIZUMAB
     Dosage: (1 YEAR AND A HALF AGO)
     Route: 065
  6. XOLAIR [Suspect]
     Active Substance: OMALIZUMAB
     Route: 065
  7. MONTELUKAST [Suspect]
     Active Substance: MONTELUKAST SODIUM
     Indication: Antiallergic therapy
     Route: 065
  8. MEROPENEM [Suspect]
     Active Substance: MEROPENEM
     Indication: Product used for unknown indication
     Route: 065
  9. ESOMEPRAZOLE [Concomitant]
     Active Substance: ESOMEPRAZOLE
     Route: 048
     Dates: start: 2020
  10. EPINASTINE [Concomitant]
     Active Substance: EPINASTINE
     Indication: Antiallergic therapy
     Route: 031
  11. FLUTICASONE FUROATE [Concomitant]
     Active Substance: FLUTICASONE FUROATE
     Indication: Rhinitis
     Route: 045
  12. CETIRIZINE HYDROCHLORIDE [Concomitant]
     Active Substance: CETIRIZINE HYDROCHLORIDE
     Indication: Hypersensitivity
     Route: 065
  13. LEVOCETIRIZINE;MONTELUKAST [Concomitant]
     Indication: Hypersensitivity
     Route: 065
  14. ALLEGRA [Concomitant]
     Active Substance: FEXOFENADINE HYDROCHLORIDE
     Indication: Urticaria
     Route: 065
     Dates: start: 2020
  15. BUDESONIDE [Concomitant]
     Active Substance: BUDESONIDE
     Indication: Urticaria
     Dosage: UNK
     Route: 061

REACTIONS (23)
  - Tracheal obstruction [Unknown]
  - Inflammation [Unknown]
  - Feeling abnormal [Unknown]
  - Escherichia infection [Unknown]
  - Arthritis [Unknown]
  - Gastrointestinal infection [Unknown]
  - Fear [Unknown]
  - Blister [Unknown]
  - Fluid retention [Unknown]
  - Vomiting [Unknown]
  - Joint swelling [Unknown]
  - Weight increased [Unknown]
  - Pain [Unknown]
  - Nausea [Unknown]
  - Gastritis [Unknown]
  - Hypersensitivity [Unknown]
  - Urticaria [Unknown]
  - Headache [Unknown]
  - Arthralgia [Unknown]
  - Muscle rigidity [Unknown]
  - Depression [Unknown]
  - Alopecia [Unknown]
  - Off label use [Unknown]

NARRATIVE: CASE EVENT DATE: 20200301
